APPROVED DRUG PRODUCT: ZELSUVMI
Active Ingredient: BERDAZIMER SODIUM
Strength: EQ 10.3% BASE
Dosage Form/Route: GEL;TOPICAL
Application: N217424 | Product #001
Applicant: LNHC INC
Approved: Jan 5, 2024 | RLD: Yes | RS: Yes | Type: RX

PATENTS:
Patent 11723858 | Expires: Jul 10, 2035
Patent 11040006 | Expires: Jul 10, 2035
Patent 10736839 | Expires: Jul 10, 2035
Patent 10736839 | Expires: Jul 10, 2035
Patent 10736839 | Expires: Jul 10, 2035
Patent 10322081 | Expires: Jul 10, 2035
Patent 10322081 | Expires: Jul 10, 2035
Patent 10322081 | Expires: Jul 10, 2035
Patent 10322081 | Expires: Jul 10, 2035
Patent 10258564 | Expires: Nov 22, 2034
Patent 10258564 | Expires: Nov 22, 2034
Patent 10258564 | Expires: Nov 22, 2034
Patent 9855211 | Expires: Feb 27, 2034
Patent 9855211 | Expires: Feb 27, 2034
Patent 9737561 | Expires: Aug 20, 2030
Patent 9289442 | Expires: Jul 3, 2032
Patent 11285098 | Expires: Feb 28, 2034
Patent 8956658 | Expires: May 30, 2026
Patent 10376538 | Expires: Aug 20, 2030
Patent 9526738 | Expires: Sep 3, 2031
Patent 8282967 | Expires: May 30, 2026
Patent 10265334 | Expires: Jul 3, 2032

EXCLUSIVITY:
Code: NCE | Date: Jan 5, 2029